FAERS Safety Report 15125701 (Version 4)
Quarter: 2020Q1

REPORT INFORMATION
  Report Type: Spontaneous
  Country: JP (occurrence: JP)
  Receive Date: 20180710
  Receipt Date: 20200203
  Transmission Date: 20200409
  Serious: Yes (Hospitalization, Disabling, Other)
  Sender: FDA-Public Use
  Company Number: JP-BRISTOL-MYERS SQUIBB COMPANY-BMS-2018-062830

PATIENT
  Age: 64 Year
  Sex: Male
  Weight: 54.8 kg

DRUGS (1)
  1. OPDIVO [Suspect]
     Active Substance: NIVOLUMAB
     Indication: GASTRIC CANCER RECURRENT
     Dosage: 3 MG/KG, UNK
     Route: 041
     Dates: start: 20180302, end: 20180419

REACTIONS (12)
  - Dry skin [Unknown]
  - Polyp [Unknown]
  - Impaired gastric emptying [Recovering/Resolving]
  - Neuropathy peripheral [Recovering/Resolving]
  - Stomatitis [Unknown]
  - Oral candidiasis [Unknown]
  - Diarrhoea [Recovered/Resolved]
  - Asthenia [Recovered/Resolved]
  - Hypokalaemia [Recovering/Resolving]
  - Eyelid ptosis [Unknown]
  - Oedema [Unknown]
  - Blood creatine phosphokinase increased [Unknown]

NARRATIVE: CASE EVENT DATE: 20180419
